FAERS Safety Report 8306784-4 (Version None)
Quarter: 2012Q1

REPORT INFORMATION
  Report Type: 
  Country: None (occurrence: None)
  Receive Date: 20120327
  Receipt Date: 20100309
  Transmission Date: 20120608
  Serious: Yes (Other)
  Sender: FDA-Public Use
  Company Number: PHEH2006US04149

PATIENT
  Sex: Male

DRUGS (1)
  1. GLEEVEC [Suspect]
     Indication: CHRONIC MYELOID LEUKAEMIA
     Dosage: 400 MG, QD, ORAL
     Route: 048
     Dates: start: 20030701

REACTIONS (6)
  - NEUROPATHY PERIPHERAL [None]
  - FATIGUE [None]
  - PAIN [None]
  - DYSPNOEA [None]
  - DRUG RESISTANCE [None]
  - GAIT DISTURBANCE [None]
